FAERS Safety Report 10219579 (Version 1)
Quarter: 2014Q2

REPORT INFORMATION
  Report Type: Spontaneous
  Country: US (occurrence: None)
  Receive Date: 20140603
  Receipt Date: 20140603
  Transmission Date: 20141212
  Serious: Yes (Hospitalization)
  Sender: FDA-Public Use
  Company Number: 2370354

PATIENT
  Age: 67 Year
  Sex: Male

DRUGS (3)
  1. AMIODARONE [Suspect]
     Indication: ATRIAL FLUTTER
  2. DABIGATRAN [Concomitant]
  3. FUROSEMIDE [Concomitant]

REACTIONS (4)
  - Hyponatraemia [None]
  - Hypothyroidism [None]
  - Dizziness [None]
  - Blood pressure increased [None]
